FAERS Safety Report 6832789-6 (Version None)
Quarter: 2010Q3

REPORT INFORMATION
  Report Type: 
  Country: None (occurrence: None)
  Receive Date: 20100712
  Receipt Date: 20070502
  Transmission Date: 20110219
  Serious: No
  Sender: FDA-Public Use
  Company Number: US-PFIZER INC-2007023398

PATIENT
  Sex: Female
  Weight: 68.04 kg

DRUGS (8)
  1. CHANTIX [Suspect]
     Indication: SMOKING CESSATION THERAPY
     Dates: start: 20070201
  2. CYMBALTA [Concomitant]
  3. DIAZEPAM [Concomitant]
  4. ZELNORM [Concomitant]
     Indication: ABDOMINAL DISCOMFORT
  5. AMBIEN [Concomitant]
  6. HYDROMORPHONE [Concomitant]
  7. IBUPROFEN [Concomitant]
  8. LAMICTAL [Concomitant]

REACTIONS (5)
  - FEELING ABNORMAL [None]
  - HEADACHE [None]
  - INFLUENZA [None]
  - NAUSEA [None]
  - PYREXIA [None]
